FAERS Safety Report 6196796-1 (Version None)
Quarter: 2009Q2

REPORT INFORMATION
  Report Type: 
  Country: None (occurrence: None)
  Receive Date: 20090520
  Receipt Date: 20090515
  Transmission Date: 20091009
  Serious: Yes (Other)
  Sender: FDA-Public Use
  Company Number: PHHY2009CH18803

PATIENT
  Age: 31 Year
  Sex: Male

DRUGS (4)
  1. LEPONEX [Suspect]
     Indication: SCHIZOPHRENIA, PARANOID TYPE
     Dosage: 400 MG/D
     Dates: start: 20090102, end: 20090401
  2. LEPONEX [Suspect]
     Dosage: UNK
     Dates: start: 20090401
  3. SOLIAN [Suspect]
     Indication: SCHIZOPHRENIA
     Dosage: 1000 MG/D
     Dates: start: 20090212, end: 20090401
  4. SOLIAN [Suspect]
     Dosage: UNK
     Dates: start: 20090401

REACTIONS (4)
  - CONDITION AGGRAVATED [None]
  - DYSLIPIDAEMIA [None]
  - ELECTROCARDIOGRAM QT INTERVAL ABNORMAL [None]
  - HYPERTRIGLYCERIDAEMIA [None]
